FAERS Safety Report 10880358 (Version 1)
Quarter: 2015Q1

REPORT INFORMATION
  Report Type: Spontaneous
  Country: US (occurrence: US)
  Receive Date: 20150302
  Receipt Date: 20150302
  Transmission Date: 20150721
  Serious: No
  Sender: FDA-Public Use
  Company Number: US-ELI_LILLY_AND_COMPANY-US201502009448

PATIENT
  Age: 55 Year
  Sex: Female

DRUGS (3)
  1. INSULIN HUMAN [Suspect]
     Active Substance: INSULIN HUMAN
     Indication: TYPE 2 DIABETES MELLITUS
     Dosage: 75 U, TID
     Route: 065
  2. METFORMIN [Concomitant]
     Active Substance: METFORMIN HYDROCHLORIDE
  3. HUMULIN R [Concomitant]
     Active Substance: INSULIN HUMAN
     Dosage: 225 U, QD

REACTIONS (3)
  - Glycosylated haemoglobin increased [Unknown]
  - Medication error [Unknown]
  - Blood glucose increased [Recovered/Resolved]
